FAERS Safety Report 15353108 (Version 9)
Quarter: 2020Q2

REPORT INFORMATION
  Report Type: Report from Study
  Country: US (occurrence: US)
  Receive Date: 20180905
  Receipt Date: 20200513
  Transmission Date: 20200713
  Serious: Yes (Hospitalization)
  Sender: FDA-Public Use
  Company Number: US-ACTELION-A-NJ2018-178213

PATIENT
  Age: 76 Year
  Sex: Male
  Weight: 104.31 kg

DRUGS (5)
  1. TYVASO [Concomitant]
     Active Substance: TREPROSTINIL
     Dosage: UNK
     Dates: end: 202004
  2. OXYGEN. [Concomitant]
     Active Substance: OXYGEN
     Dosage: 4-5 L/M, PRN
  3. OPSUMIT [Suspect]
     Active Substance: MACITENTAN
     Indication: PULMONARY ARTERIAL HYPERTENSION
     Dosage: 10 MG, QD
     Route: 048
  4. XARELTO [Concomitant]
     Active Substance: RIVAROXABAN
  5. SILDENAFIL CITRATE. [Concomitant]
     Active Substance: SILDENAFIL CITRATE

REACTIONS (19)
  - Malaise [Unknown]
  - Transient ischaemic attack [Unknown]
  - Pneumonia [Unknown]
  - Cardiac failure [Unknown]
  - Weight decreased [Unknown]
  - Gastrointestinal haemorrhage [Unknown]
  - Right ventricular failure [Unknown]
  - Dizziness [Unknown]
  - Pulmonary hypertension [Unknown]
  - Disease complication [Unknown]
  - Hypoxia [Not Recovered/Not Resolved]
  - Syncope [Unknown]
  - Vascular operation [Unknown]
  - Oxygen saturation decreased [Unknown]
  - Haemoglobin decreased [Unknown]
  - Carotid endarterectomy [Unknown]
  - Gastrointestinal surgery [Unknown]
  - Hypotension [Unknown]
  - Breath sounds abnormal [Not Recovered/Not Resolved]

NARRATIVE: CASE EVENT DATE: 20180907
